FAERS Safety Report 8596359-4 (Version None)
Quarter: 2012Q3

REPORT INFORMATION
  Report Type: 
  Country: None (occurrence: None)
  Receive Date: 20120815
  Receipt Date: 20120809
  Transmission Date: 20120928
  Serious: Yes (Death, Hospitalization)
  Sender: FDA-Public Use
  Company Number: US-CELGENEUS-163-50794-12080249

PATIENT
  Sex: Male
  Weight: 58.5 kg

DRUGS (17)
  1. VIDAZA [Suspect]
     Dosage: 75 MILLIGRAM/SQ. METER
     Route: 065
     Dates: start: 20120618, end: 20120624
  2. VIDAZA [Suspect]
     Dosage: 75 MILLIGRAM/SQ. METER
     Route: 065
     Dates: start: 20120716, end: 20120722
  3. AMLODIPINE [Concomitant]
     Dosage: 5 MILLIGRAM
     Route: 065
  4. ATIVAN [Concomitant]
     Dosage: .26 MILLIGRAM
     Route: 065
  5. METFORMIN HYDROCHLORIDE [Concomitant]
     Dosage: 1000 MILLIGRAM
     Route: 065
  6. MIDOSTAURIN [Suspect]
     Dosage: 150 MILLIGRAM
     Route: 065
     Dates: start: 20120723, end: 20120729
  7. HUMULIN R [Concomitant]
     Dosage: 4-10 UNITS
     Route: 065
  8. TYLENOL [Concomitant]
     Dosage: 650 MILLIGRAM
     Route: 065
  9. CLOTRIMAZOLE [Concomitant]
     Dosage: 10 MILLIGRAM
     Route: 065
  10. FLUCONAZOLE [Concomitant]
     Dosage: 200 MILLIGRAM
     Route: 065
  11. ONDANSETRON [Concomitant]
     Dosage: 16 MILLIGRAM
     Route: 065
  12. LANTUS [Concomitant]
     Dosage: 10 IU (INTERNATIONAL UNIT)
     Route: 065
  13. LEVOTHYROXINE SODIUM [Concomitant]
     Dosage: 75 MICROGRAM
     Route: 065
  14. HUMALOG [Concomitant]
     Route: 065
  15. FLUIDS [Concomitant]
     Route: 041
  16. ACYCLOVIR [Concomitant]
     Dosage: 800 MILLIGRAM
     Route: 065
  17. FAMOTIDINE [Concomitant]
     Dosage: 20 MILLIGRAM
     Route: 065

REACTIONS (3)
  - PNEUMONIA [None]
  - HEPATOTOXICITY [None]
  - SEPSIS [None]
